FAERS Safety Report 6115861-8 (Version None)
Quarter: 2009Q1

REPORT INFORMATION
  Report Type: 
  Country: None (occurrence: None)
  Receive Date: 20090311
  Receipt Date: 20090217
  Transmission Date: 20090719
  Serious: Yes (Hospitalization)
  Sender: FDA-Public Use
  Company Number: US025502

PATIENT
  Sex: Male

DRUGS (2)
  1. FENTORA [Suspect]
     Dosage: UNK BUCCAL
     Route: 002
  2. FENTANYL-25 [Concomitant]

REACTIONS (5)
  - DEHYDRATION [None]
  - DRUG DIVERSION [None]
  - DRUG SCREEN POSITIVE [None]
  - INTENTIONAL DRUG MISUSE [None]
  - RENAL FAILURE ACUTE [None]
